FAERS Safety Report 13692937 (Version 2)
Quarter: 2017Q3

REPORT INFORMATION
  Report Type: Report from Study
  Country: PH (occurrence: PH)
  Receive Date: 20170627
  Receipt Date: 20170710
  Transmission Date: 20171127
  Serious: Yes (Hospitalization)
  Sender: FDA-Public Use
  Company Number: PH-ASTRAZENECA-2016SE90082

PATIENT
  Age: 23366 Day
  Sex: Female
  Weight: 40 kg

DRUGS (11)
  1. AMLODIPINE [Concomitant]
     Active Substance: AMLODIPINE BESYLATE
     Dosage: ONCE
     Route: 048
     Dates: start: 20150608
  2. SALBUTAMOL [Concomitant]
     Active Substance: ALBUTEROL
     Dosage: 1.0DF AS REQUIRED
     Route: 048
  3. LOSARTAN. [Concomitant]
     Active Substance: LOSARTAN
     Dosage: ONCE
     Route: 048
     Dates: start: 20150608
  4. LOPERAMIDE [Concomitant]
     Active Substance: LOPERAMIDE
     Route: 048
     Dates: start: 20150910
  5. IRESSA [Suspect]
     Active Substance: GEFITINIB
     Indication: NON-SMALL CELL LUNG CANCER METASTATIC
     Route: 048
     Dates: start: 20150907, end: 20150918
  6. IRESSA [Suspect]
     Active Substance: GEFITINIB
     Indication: NON-SMALL CELL LUNG CANCER METASTATIC
     Route: 048
     Dates: start: 20150921, end: 20170308
  7. ATORVASTATIN [Concomitant]
     Active Substance: ATORVASTATIN
     Dosage: ONCE
     Route: 048
     Dates: start: 20150608
  8. APPEBON [Concomitant]
     Dosage: ONCE
     Route: 048
     Dates: start: 20150606
  9. PREGABALIN. [Concomitant]
     Active Substance: PREGABALIN
     Dosage: ONCE
     Route: 048
     Dates: start: 20150818
  10. METFORMIN [Concomitant]
     Active Substance: METFORMIN HYDROCHLORIDE
     Route: 048
     Dates: start: 20150608
  11. TRAJENTA [Concomitant]
     Active Substance: LINAGLIPTIN
     Dosage: ONCE
     Route: 048
     Dates: start: 20150608

REACTIONS (2)
  - Vomiting [Recovered/Resolved]
  - Diarrhoea infectious [Recovered/Resolved]

NARRATIVE: CASE EVENT DATE: 20160815
